FAERS Safety Report 4317119-6 (Version None)
Quarter: 2004Q1

REPORT INFORMATION
  Report Type: 
  Country: None (occurrence: None)
  Receive Date: 20040312
  Receipt Date: 20040303
  Transmission Date: 20041129
  Serious: Yes (Life-Threatening)
  Sender: FDA-Public Use
  Company Number: NL-JNJFOC-20040301068

PATIENT
  Age: 72 Year
  Sex: Female

DRUGS (9)
  1. CORDIUM (BEPRIDIL HYDROCHLORIDE MONOHYDRATE) TABLETS [Suspect]
     Indication: CARDIAC FAILURE
     Dosage: 100 MG, ORAL
     Route: 048
     Dates: start: 20040126
  2. PILSICAINIDE HYDROCHLORIDE (PILSICAINIDE HYDROCHLORIDE) [Suspect]
     Indication: CARDIAC FAILURE
     Dosage: 150 MG
     Dates: start: 20040123
  3. AMLODIPINE BESYLATE [Concomitant]
  4. VOGLIBOSE (VOGLIBOSE) [Concomitant]
  5. CARVEDILOL [Concomitant]
  6. FUROSEMIDE [Concomitant]
  7. GLICLAZIDE (GLICLAZIDE) [Concomitant]
  8. WARFARIN SODIUM [Concomitant]
  9. SPIRONOLACTONE [Concomitant]

REACTIONS (3)
  - ATRIAL FIBRILLATION [None]
  - CARDIO-RESPIRATORY ARREST [None]
  - DRUG INTERACTION [None]
